FAERS Safety Report 10211687 (Version 1)
Quarter: 2014Q2

REPORT INFORMATION
  Report Type: Report from Study
  Country: US (occurrence: US)
  Receive Date: 20140602
  Receipt Date: 20140602
  Transmission Date: 20141212
  Serious: Yes (Hospitalization, Other)
  Sender: FDA-Public Use
  Company Number: US-BAXTER-2014BAX027542

PATIENT
  Age: 51 Year
  Sex: Female

DRUGS (3)
  1. GAMMAGARD S/D [Suspect]
     Indication: IMMUNODEFICIENCY COMMON VARIABLE
     Route: 042
  2. GAMMAGARD S/D [Suspect]
     Indication: PRIMARY IMMUNODEFICIENCY SYNDROME
     Route: 042
  3. GAMMAGARD S/D [Suspect]
     Route: 042

REACTIONS (11)
  - Infection [Unknown]
  - Pneumonia [Unknown]
  - Complication of pregnancy [Unknown]
  - Infection [Unknown]
  - Migraine [Unknown]
  - Pyrexia [Unknown]
  - Tremor [Unknown]
  - Bone pain [Unknown]
  - Fatigue [Unknown]
  - Malaise [Unknown]
  - Maternal exposure before pregnancy [Unknown]
